FAERS Safety Report 7949553-7 (Version None)
Quarter: 2011Q4

REPORT INFORMATION
  Report Type: 
  Country: None (occurrence: None)
  Receive Date: 20111123
  Receipt Date: 20111111
  Transmission Date: 20120403
  Serious: Yes (Hospitalization, Other)
  Sender: FDA-Public Use
  Company Number: TPA2011A06993

PATIENT
  Age: 68 Year
  Sex: Male
  Weight: 66.6788 kg

DRUGS (3)
  1. ACTOS [Suspect]
     Indication: TYPE 2 DIABETES MELLITUS
     Dosage: 15; 45 MG, 1 IN 1 D, PER ORAL
     Route: 048
     Dates: start: 20100101, end: 20111010
  2. ACTOS [Suspect]
     Indication: TYPE 2 DIABETES MELLITUS
     Dosage: 15; 45 MG, 1 IN 1 D, PER ORAL
     Route: 048
     Dates: start: 20040101, end: 20100101
  3. METFORMIN HCL [Concomitant]

REACTIONS (1)
  - SQUAMOUS CELL CARCINOMA [None]
